FAERS Safety Report 7672802-X (Version None)
Quarter: 2011Q3

REPORT INFORMATION
  Report Type: 
  Country: None (occurrence: None)
  Receive Date: 20110809
  Receipt Date: 20110804
  Transmission Date: 20111222
  Serious: Yes (Other)
  Sender: FDA-Public Use
  Company Number: US-ABBOTT-11P-163-0844314-00

PATIENT
  Sex: Female
  Weight: 43.13 kg

DRUGS (5)
  1. HUMIRA [Suspect]
     Indication: CROHN'S DISEASE
     Dates: start: 20091201
  2. VITAMIN D [Concomitant]
     Indication: VITAMIN D DECREASED
  3. CITALOPRAM HYDROBROMIDE [Concomitant]
     Indication: OBSESSIVE-COMPULSIVE DISORDER
  4. ROXICET [Concomitant]
     Indication: OSTEOPOROSIS
  5. MICROGESTIN 1.5/30 [Concomitant]
     Indication: TURNER'S SYNDROME

REACTIONS (3)
  - TOOTHACHE [None]
  - BASAL CELL CARCINOMA [None]
  - MELANOCYTIC NAEVUS [None]
